FAERS Safety Report 7604369-6 (Version None)
Quarter: 2011Q3

REPORT INFORMATION
  Report Type: 
  Country: None (occurrence: None)
  Receive Date: 20110712
  Receipt Date: 20110630
  Transmission Date: 20111222
  Serious: Yes (Hospitalization)
  Sender: FDA-Public Use
  Company Number: PHHY2011NL27691

PATIENT
  Sex: Male

DRUGS (12)
  1. ZOMETA [Suspect]
     Dosage: 4 MG/ 5ML, 1X PER 28 DAYS
     Dates: start: 20110304
  2. ZOLADEX [Concomitant]
  3. ZOMETA [Suspect]
     Dates: start: 20110530
  4. CITALOPRAM [Concomitant]
  5. ZOMETA [Suspect]
     Indication: PROSTATE CANCER METASTATIC
     Dosage: 4 MG/ 5ML, 1X PER 28 DAYS
     Dates: start: 20101018
  6. ZOMETA [Suspect]
     Dates: start: 20110428
  7. TAMSULOSIN HCL [Concomitant]
  8. PREDNISONE [Concomitant]
  9. ZOMETA [Suspect]
     Dosage: 4 MG/ 5ML, 1X PER 28 DAYS
     Dates: start: 20110404
  10. OMEPRAZOLE [Concomitant]
  11. FENTANYL [Concomitant]
     Dosage: 62 UG, UNK
  12. DICLOFENAC [Concomitant]

REACTIONS (4)
  - CENTRAL NERVOUS SYSTEM LESION [None]
  - CONDITION AGGRAVATED [None]
  - PAIN [None]
  - BONE PAIN [None]
